FAERS Safety Report 4341832-8 (Version None)
Quarter: 2004Q2

REPORT INFORMATION
  Report Type: 
  Country: None (occurrence: None)
  Receive Date: 20040416
  Receipt Date: 20040329
  Transmission Date: 20050107
  Serious: Yes (Hospitalization)
  Sender: FDA-Public Use
  Company Number: 200402293

PATIENT
  Age: 67 Year
  Sex: Female

DRUGS (4)
  1. LUMIGAN [Suspect]
     Indication: GLAUCOMA
     Dosage: 2 DROP QHS EYE
     Dates: start: 20021001, end: 20030101
  2. ALPHAGAN P [Concomitant]
  3. ASPIRIN [Concomitant]
  4. HYDROCHLOROTHIAZIDE [Concomitant]

REACTIONS (2)
  - HYSTERECTOMY [None]
  - UTERINE HAEMORRHAGE [None]
